FAERS Safety Report 5830768-9 (Version None)
Quarter: 2008Q3

REPORT INFORMATION
  Report Type: 
  Country: None (occurrence: None)
  Receive Date: 20080801
  Receipt Date: 20080401
  Transmission Date: 20090109
  Serious: No
  Sender: FDA-Public Use
  Company Number: US-BRISTOL-MYERS SQUIBB COMPANY-13983739

PATIENT
  Age: 88 Year
  Sex: Female
  Weight: 48 kg

DRUGS (8)
  1. COUMADIN [Suspect]
  2. WARFARIN SODIUM [Suspect]
  3. DARVOCET-N 100 [Suspect]
  4. TOPROL-XL [Concomitant]
  5. LASIX [Concomitant]
  6. KLOR-CON [Concomitant]
  7. AMBIEN [Concomitant]
  8. SOY LECITHIN [Concomitant]

REACTIONS (17)
  - APHONIA [None]
  - BACK PAIN [None]
  - BRADYPHRENIA [None]
  - DEAFNESS [None]
  - DERMATITIS [None]
  - DIZZINESS [None]
  - FALL [None]
  - HEADACHE [None]
  - INTERNATIONAL NORMALISED RATIO FLUCTUATION [None]
  - MUSCULOSKELETAL CHEST PAIN [None]
  - MUSCULOSKELETAL PAIN [None]
  - NECK PAIN [None]
  - OEDEMA PERIPHERAL [None]
  - PAIN IN EXTREMITY [None]
  - SYNCOPE [None]
  - TRANSIENT ISCHAEMIC ATTACK [None]
  - WEIGHT DECREASED [None]
